FAERS Safety Report 18751179 (Version 2)
Quarter: 2022Q3

REPORT INFORMATION
  Report Type: Spontaneous
  Country: JP (occurrence: JP)
  Receive Date: 20210118
  Receipt Date: 20220714
  Transmission Date: 20221026
  Serious: Yes (Hospitalization)
  Sender: FDA-Public Use
  Company Number: JP-GSKNCCC-CASE-01122495_AE-39138

PATIENT

DRUGS (5)
  1. LAMICTAL [Suspect]
     Active Substance: LAMOTRIGINE
     Indication: Epilepsy
     Dosage: 200 MG, BID
     Route: 048
  2. VALPROATE SODIUM [Concomitant]
     Active Substance: VALPROATE SODIUM
     Indication: Epilepsy
     Dosage: UNK
  3. MYSTAN [Concomitant]
     Active Substance: CLOBAZAM
     Dosage: UNK
  4. FYCOMPA [Concomitant]
     Active Substance: PERAMPANEL
     Dosage: UNK
  5. INOVELON [Concomitant]
     Active Substance: RUFINAMIDE
     Dosage: UNK

REACTIONS (4)
  - Hospitalisation [Unknown]
  - Feeling abnormal [Unknown]
  - Prescribed overdose [Unknown]
  - Product dose omission issue [Unknown]
